FAERS Safety Report 22305839 (Version 1)
Quarter: 2023Q2

REPORT INFORMATION
  Report Type: Spontaneous
  Country: US (occurrence: US)
  Receive Date: 20230511
  Receipt Date: 20230511
  Transmission Date: 20230722
  Serious: No
  Sender: FDA-Public Use
  Company Number: US-BRISTOL-MYERS SQUIBB COMPANY-2023-066649

PATIENT
  Age: 68 Year
  Sex: Male

DRUGS (1)
  1. REVLIMID [Suspect]
     Active Substance: LENALIDOMIDE
     Indication: Plasma cell myeloma
     Dosage: FEQUENCY: TAKE 1 CAPSULE BY MOUTH ONE TIME PER DAY ON DAYS 1 TO 14, REST7 DAYS, EVERY 21 DAYS
     Route: 048
     Dates: start: 202305

REACTIONS (1)
  - Off label use [Unknown]
